FAERS Safety Report 10108886 (Version 1)
Quarter: 2014Q2

REPORT INFORMATION
  Report Type: Spontaneous
  Country: US (occurrence: None)
  Receive Date: 20140423
  Receipt Date: 20140423
  Transmission Date: 20141212
  Serious: Yes (Hospitalization)
  Sender: FDA-Public Use
  Company Number: 2014P1003185

PATIENT
  Sex: Female

DRUGS (3)
  1. LAMOTRIGINE [Suspect]
     Route: 064
  2. DIPHENHYDRAMINE [Concomitant]
  3. PRENATAL VITAMINS [Concomitant]

REACTIONS (6)
  - Feeding disorder neonatal [None]
  - Jaundice neonatal [None]
  - Dehydration [None]
  - Hypotonia neonatal [None]
  - Exposure during breast feeding [None]
  - Maternal drugs affecting foetus [None]
